FAERS Safety Report 22637910 (Version 1)
Quarter: 2023Q2

REPORT INFORMATION
  Report Type: Spontaneous
  Country: US (occurrence: US)
  Receive Date: 20230626
  Receipt Date: 20230626
  Transmission Date: 20230721
  Serious: Yes (Death, Life-Threatening, Hospitalization, Other)
  Sender: FDA-Public Use
  Company Number: US-INCYTE CORPORATION-2023IN006480

PATIENT
  Age: 15 Year
  Sex: Female

DRUGS (16)
  1. JAKAFI [Suspect]
     Active Substance: RUXOLITINIB
     Indication: Cytokine release syndrome
     Dosage: UNK
     Route: 065
  2. JAKAFI [Suspect]
     Active Substance: RUXOLITINIB
     Indication: Haemophagocytic lymphohistiocytosis
  3. JAKAFI [Suspect]
     Active Substance: RUXOLITINIB
     Indication: Neurotoxicity
  4. KYMRIAH [Suspect]
     Active Substance: TISAGENLECLEUCEL
     Indication: Acute lymphocytic leukaemia
     Dosage: UNK, ONCE/SINGLE
     Route: 042
     Dates: start: 20230503
  5. TOCILIZUMAB [Suspect]
     Active Substance: TOCILIZUMAB
     Indication: Cytokine release syndrome
     Dosage: UNK UNK, BID (X2)
     Route: 065
  6. TOCILIZUMAB [Suspect]
     Active Substance: TOCILIZUMAB
     Indication: Haemophagocytic lymphohistiocytosis
  7. TOCILIZUMAB [Suspect]
     Active Substance: TOCILIZUMAB
     Indication: Neurotoxicity
  8. SOLU-MEDROL [Suspect]
     Active Substance: METHYLPREDNISOLONE SODIUM SUCCINATE
     Indication: Cytokine release syndrome
     Dosage: UNK
     Route: 065
  9. SOLU-MEDROL [Suspect]
     Active Substance: METHYLPREDNISOLONE SODIUM SUCCINATE
     Indication: Haemophagocytic lymphohistiocytosis
  10. SOLU-MEDROL [Suspect]
     Active Substance: METHYLPREDNISOLONE SODIUM SUCCINATE
     Indication: Neurotoxicity
  11. ANAKINRA [Suspect]
     Active Substance: ANAKINRA
     Indication: Cytokine release syndrome
     Dosage: UNK
     Route: 065
  12. ANAKINRA [Suspect]
     Active Substance: ANAKINRA
     Indication: Haemophagocytic lymphohistiocytosis
  13. ANAKINRA [Suspect]
     Active Substance: ANAKINRA
     Indication: Neurotoxicity
  14. DECADRON [Concomitant]
     Active Substance: DEXAMETHASONE
     Indication: Cytokine release syndrome
     Dosage: UNK
     Route: 065
  15. DECADRON [Concomitant]
     Active Substance: DEXAMETHASONE
     Indication: Haemophagocytic lymphohistiocytosis
  16. DECADRON [Concomitant]
     Active Substance: DEXAMETHASONE
     Indication: Neurotoxicity

REACTIONS (13)
  - Pulseless electrical activity [Fatal]
  - Immune effector cell-associated neurotoxicity syndrome [Unknown]
  - Hepatic failure [Unknown]
  - Respiratory failure [Unknown]
  - Renal failure [Unknown]
  - Septic shock [Unknown]
  - Vascular device infection [Unknown]
  - Staphylococcal infection [Unknown]
  - Vasoplegia syndrome [Unknown]
  - Hypotension [Unknown]
  - Acidosis [Unknown]
  - Candida test positive [Unknown]
  - Off label use [Unknown]

NARRATIVE: CASE EVENT DATE: 20230511
